FAERS Safety Report 23919511 (Version 1)
Quarter: 2024Q2

REPORT INFORMATION
  Report Type: Report from Study
  Country: US (occurrence: None)
  Receive Date: 20240530
  Receipt Date: 20240530
  Transmission Date: 20240716
  Serious: Yes (Other)
  Sender: FDA-Public Use
  Company Number: 2024A121065

PATIENT
  Sex: Male
  Weight: 97.5 kg

DRUGS (8)
  1. TAGRISSO [Suspect]
     Active Substance: OSIMERTINIB
     Indication: Lung neoplasm malignant
     Route: 048
     Dates: start: 20230928
  2. MPID : 1263320(1.01) : ATIVAN [Concomitant]
     Indication: Product used for unknown indication
  3. MPID : 1325694(1.01) : DEXAMETHASONE [Concomitant]
     Indication: Product used for unknown indication
  4. MPID : 1852574(1.01) : GREEN TEA EXTRACT [Concomitant]
     Indication: Product used for unknown indication
  5. MPID : 3448886(1.01) : MULTIVITAMINS [Concomitant]
     Indication: Product used for unknown indication
  6. OMEGA 3 [Concomitant]
     Active Substance: CAPSAICIN
     Indication: Product used for unknown indication
  7. MPID : 1250385(1.01) : PAXIL [Concomitant]
     Indication: Product used for unknown indication
  8. MPID : 4029881(1.01) : TURKEY TAIL MUSHROOM [Concomitant]
     Indication: Product used for unknown indication

REACTIONS (2)
  - Swelling [Unknown]
  - Brain oedema [Unknown]
